FAERS Safety Report 7099803-7 (Version None)
Quarter: 2010Q4

REPORT INFORMATION
  Report Type: 
  Country: None (occurrence: None)
  Receive Date: 20101112
  Receipt Date: 20101105
  Transmission Date: 20110411
  Serious: Yes (Hospitalization)
  Sender: FDA-Public Use
  Company Number: JP-PFIZER INC-2010129479

PATIENT
  Age: 65 Year
  Sex: Male

DRUGS (5)
  1. LYRICA [Suspect]
     Indication: PAIN
     Dosage: 300 MG, DAILY
     Route: 048
  2. LYRICA [Suspect]
     Dosage: 150 MG/DAY
  3. GABAPENTIN [Suspect]
     Indication: PAIN
     Dosage: 2400 MG/DAY
     Route: 048
  4. GABAPENTIN [Suspect]
     Dosage: 1200 MG/DAY
  5. MS CONTIN [Concomitant]
     Route: 048

REACTIONS (2)
  - DIZZINESS [None]
  - NEOPLASM MALIGNANT [None]
